FAERS Safety Report 8090825-6 (Version None)
Quarter: 2012Q1

REPORT INFORMATION
  Report Type: 
  Country: None (occurrence: None)
  Receive Date: 20120125
  Receipt Date: 20120117
  Transmission Date: 20120608
  Serious: Yes (Hospitalization, Disabling, Other)
  Sender: FDA-Public Use
  Company Number: AUR-APL-2011-04885

PATIENT
  Age: 76 Year
  Sex: Male
  Weight: 70 kg

DRUGS (9)
  1. FUROSEMIDE [Concomitant]
  2. RAMIPRIL [Suspect]
     Indication: HYPERTENSION
     Dosage: 2.5 MG (2.5 MG, 1 IN 1 D), ORAL
     Route: 048
     Dates: start: 20110801
  3. ATORVASTATIN [Concomitant]
  4. FELODIPINE [Concomitant]
  5. CLOPIDOGREL [Concomitant]
  6. ISOSORBIDE MONONITRATE [Concomitant]
  7. LANSOPRAZOLE [Concomitant]
  8. IVABRADINE (IVABRADINE) [Suspect]
     Indication: ANGINA PECTORIS
     Dosage: 10 MG (5 MG, 2 IN 1 D), ORAL
     Route: 048
     Dates: start: 20110301, end: 20110817
  9. EZETIMIBE [Concomitant]

REACTIONS (3)
  - LUNG DISORDER [None]
  - WEIGHT DECREASED [None]
  - DYSPNOEA [None]
